FAERS Safety Report 17496011 (Version 10)
Quarter: 2023Q1

REPORT INFORMATION
  Report Type: Report from Study
  Country: IL (occurrence: IL)
  Receive Date: 20200303
  Receipt Date: 20230330
  Transmission Date: 20230418
  Serious: Yes (Death, Hospitalization, Other)
  Sender: FDA-Public Use
  Company Number: IL-ABBVIE-20K-082-3300762-00

PATIENT
  Age: 80 Year
  Sex: Male

DRUGS (24)
  1. VENETOCLAX [Suspect]
     Active Substance: VENETOCLAX
     Indication: Acute myeloid leukaemia
     Dosage: RAMP UP
     Route: 048
     Dates: start: 20191217, end: 20191217
  2. VENETOCLAX [Suspect]
     Active Substance: VENETOCLAX
     Indication: Acute myeloid leukaemia
     Dosage: RAMP UP
     Route: 048
     Dates: start: 20191218, end: 20200110
  3. VENETOCLAX [Suspect]
     Active Substance: VENETOCLAX
     Indication: Acute myeloid leukaemia
     Route: 048
     Dates: start: 20200126, end: 20200205
  4. AZACITIDINE [Suspect]
     Active Substance: AZACITIDINE
     Indication: Acute myeloid leukaemia
     Route: 065
     Dates: start: 20200126, end: 20200131
  5. AZACITIDINE [Suspect]
     Active Substance: AZACITIDINE
     Indication: Acute myeloid leukaemia
     Route: 065
     Dates: start: 20191217, end: 20191223
  6. AZACITIDINE [Suspect]
     Active Substance: AZACITIDINE
     Indication: Acute myeloid leukaemia
     Dosage: 124 MILLIGRAM
     Route: 058
     Dates: start: 20200202, end: 20200203
  7. Fusid [Concomitant]
     Indication: Liver disorder
  8. ALDACTONE [Concomitant]
     Active Substance: SPIRONOLACTONE
     Indication: Product used for unknown indication
  9. ARTHRYL [Concomitant]
     Indication: Product used for unknown indication
  10. FOLIFER [Concomitant]
     Indication: Product used for unknown indication
  11. LACTULOSE [Concomitant]
     Active Substance: LACTULOSE
     Indication: Product used for unknown indication
  12. PENTASA [Concomitant]
     Active Substance: MESALAMINE
     Indication: Product used for unknown indication
  13. URSODIOL [Concomitant]
     Active Substance: URSODIOL
     Indication: Product used for unknown indication
  14. VITAMIN D [Concomitant]
     Active Substance: VITAMIN D NOS
     Indication: Product used for unknown indication
  15. Avilac [Concomitant]
     Indication: Product used for unknown indication
     Dates: end: 20191219
  16. Avilac [Concomitant]
     Indication: Product used for unknown indication
     Dates: start: 20200225
  17. CIPRODEX [Concomitant]
     Active Substance: CIPROFLOXACIN HYDROCHLORIDE\DEXAMETHASONE
     Indication: Product used for unknown indication
     Dates: start: 20191226
  18. MEROPENEM [Concomitant]
     Active Substance: MEROPENEM
     Indication: Product used for unknown indication
     Dates: start: 20200205, end: 20200206
  19. NEUPOGEN [Concomitant]
     Active Substance: FILGRASTIM
     Indication: Product used for unknown indication
     Dates: start: 20200205
  20. TAMSULOSIN HYDROCHLORIDE [Concomitant]
     Active Substance: TAMSULOSIN HYDROCHLORIDE
     Indication: Benign prostatic hyperplasia
     Dates: start: 20200204
  21. CEFTAZIDIME [Concomitant]
     Active Substance: CEFTAZIDIME
     Indication: Product used for unknown indication
     Dates: start: 20200206
  22. ERAXIS [Concomitant]
     Active Substance: ANIDULAFUNGIN
     Indication: Product used for unknown indication
     Dates: start: 20200210
  23. VANCOMYCIN [Concomitant]
     Active Substance: VANCOMYCIN
     Indication: Product used for unknown indication
     Dates: start: 20200204
  24. Calciless [Concomitant]
     Indication: Hyperphosphataemia
     Dates: start: 20200207, end: 20200227

REACTIONS (33)
  - Disease recurrence [Fatal]
  - Disease progression [Unknown]
  - Fatigue [Recovered/Resolved with Sequelae]
  - Cholangitis [Recovered/Resolved]
  - Cholangitis [Unknown]
  - Streptococcal infection [Unknown]
  - Urinary retention [Recovered/Resolved]
  - Ascites [Not Recovered/Not Resolved]
  - Haemoptysis [Recovered/Resolved]
  - Blood bilirubin increased [Recovered/Resolved with Sequelae]
  - Blood bilirubin increased [Recovered/Resolved with Sequelae]
  - Blood urea decreased [Recovered/Resolved]
  - Laryngitis [Unknown]
  - Hyponatraemia [Unknown]
  - Hyponatraemia [Unknown]
  - Hyponatraemia [Unknown]
  - Hypomagnesaemia [Recovered/Resolved]
  - Hypomagnesaemia [Recovered/Resolved]
  - Hypomagnesaemia [Recovered/Resolved with Sequelae]
  - Oedema [Unknown]
  - Oedema peripheral [Unknown]
  - Hyperphosphataemia [Unknown]
  - Blood pressure decreased [Recovered/Resolved]
  - Hypotension [Not Recovered/Not Resolved]
  - Oropharyngeal pain [Unknown]
  - Diarrhoea [Recovered/Resolved]
  - Diarrhoea [Unknown]
  - Neutropenia [Recovered/Resolved with Sequelae]
  - Neutropenia [Recovered/Resolved with Sequelae]
  - Neutropenia [Recovered/Resolved with Sequelae]
  - Febrile neutropenia [Recovered/Resolved]
  - Diarrhoea [Recovered/Resolved with Sequelae]
  - Nausea [Unknown]

NARRATIVE: CASE EVENT DATE: 20191217
